FAERS Safety Report 5653792-8 (Version None)
Quarter: 2008Q1

REPORT INFORMATION
  Report Type: 
  Country: None (occurrence: None)
  Receive Date: 20080205
  Receipt Date: 20071022
  Transmission Date: 20080703
  Serious: Yes (Other)
  Sender: FDA-Public Use
  Company Number: PAR_01772_2007

PATIENT
  Age: 95 Year
  Sex: Male
  Weight: 60 kg

DRUGS (4)
  1. MEGACE ES [Suspect]
     Indication: WEIGHT DECREASED
     Dosage: (5 CC DAILY; ORAL)
     Route: 048
     Dates: start: 20071001
  2. PLAVIX [Concomitant]
  3. ASPIRIN [Concomitant]
  4. DIGOXIN [Concomitant]

REACTIONS (2)
  - BLOOD CORTISOL DECREASED [None]
  - HYPOTENSION [None]
